FAERS Safety Report 6890454-3 (Version None)
Quarter: 2010Q3

REPORT INFORMATION
  Report Type: 
  Country: None (occurrence: None)
  Receive Date: 20100731
  Receipt Date: 20081031
  Transmission Date: 20110219
  Serious: No
  Sender: FDA-Public Use
  Company Number: US-PFIZER INC-2008092920

PATIENT
  Sex: Female
  Weight: 73.94 kg

DRUGS (4)
  1. LIPITOR [Suspect]
     Indication: BLOOD CHOLESTEROL INCREASED
     Dates: start: 20080301
  2. LITHIUM [Concomitant]
  3. ABILIFY [Concomitant]
  4. TEMAZEPAM [Concomitant]

REACTIONS (2)
  - ASPARTATE AMINOTRANSFERASE INCREASED [None]
  - WRONG TECHNIQUE IN DRUG USAGE PROCESS [None]
